FAERS Safety Report 18592012 (Version 1)
Quarter: 2020Q4

REPORT INFORMATION
  Report Type: Report from Study
  Country: US (occurrence: US)
  Receive Date: 20201208
  Receipt Date: 20201208
  Transmission Date: 20210114
  Serious: Yes (Death, Hospitalization, Other)
  Sender: FDA-Public Use
  Company Number: US-009507513-2011USA011723

PATIENT
  Age: 75 Year
  Sex: Male
  Weight: 62.5 kg

DRUGS (17)
  1. OXYCODONE [Concomitant]
     Active Substance: OXYCODONE
     Indication: PAIN
     Dosage: 1 TABLET, Q6H AS NEEDED FOR PAIN
     Route: 048
     Dates: start: 20200401
  2. OXYCODONE [Concomitant]
     Active Substance: OXYCODONE
     Dosage: 1 TABLET, Q6H
     Route: 048
     Dates: start: 20200415
  3. MEGESTROL ACETATE. [Concomitant]
     Active Substance: MEGESTROL ACETATE
     Dosage: 20 CC, DAILY (QD); STRENTH: 400 MG/10 ML
     Route: 048
     Dates: start: 20200422
  4. VITAMINS (UNSPECIFIED) [Concomitant]
     Active Substance: VITAMINS
     Dosage: 1 (UNIT NOT REPORTED), QD
     Route: 048
     Dates: start: 20200401
  5. OXYCONTIN [Concomitant]
     Active Substance: OXYCODONE HYDROCHLORIDE
     Dosage: 1 (UNIT NOT REPORTED), 12 HOURS (BID)
     Route: 048
     Dates: start: 20200410
  6. PROAIR HFA [Concomitant]
     Active Substance: ALBUTEROL SULFATE
     Dosage: 1-2 PUFFS, EVERY 6 HOURS (Q6H): FORMULATION: ACTUATION AEROSOL INHALER
     Dates: start: 20200401
  7. ASPIRIN. [Concomitant]
     Active Substance: ASPIRIN
     Dosage: 1 (UNIT NOT REPORTED), QD
     Route: 048
     Dates: start: 20200401
  8. ATORVASTATIN [Concomitant]
     Active Substance: ATORVASTATIN
     Dosage: 1 (UNIT NOT REPORTED), QD
     Route: 048
     Dates: start: 20200401
  9. DECADRON [Concomitant]
     Active Substance: DEXAMETHASONE
     Dosage: 1 (UNIT NOT REPORTED), 12 HOURS (BID) WITH MEAL
     Route: 048
     Dates: start: 20200410
  10. DILTIAZEM. [Concomitant]
     Active Substance: DILTIAZEM
     Dosage: 1 (UNIT NOT REPORTED), TWICE A DAY (BID)
     Route: 048
     Dates: start: 20200401
  11. ACETAMINOPHEN (+) HYDROCODONE BITARTRATE [Concomitant]
     Active Substance: ACETAMINOPHEN\HYDROCODONE BITARTRATE
     Dosage: 1 (UNIT NOT REPORTED), TWICE A DAY (BID)
     Route: 048
     Dates: start: 20200401
  12. MEGESTROL ACETATE. [Concomitant]
     Active Substance: MEGESTROL ACETATE
     Dosage: 1 (UNIT NOT REPORTED), 3 TIMES A DAY (TID)
     Route: 048
     Dates: start: 20200401
  13. MORPHINE [Concomitant]
     Active Substance: MORPHINE
     Dosage: 1 TABLET, EVERY 12 HOURS (BID)
     Route: 048
     Dates: start: 20200415
  14. XGEVA [Concomitant]
     Active Substance: DENOSUMAB
     Indication: LUNG NEOPLASM MALIGNANT
     Dosage: 120 MILLIGRAM, Q28 DAYS
     Route: 058
     Dates: start: 20200430, end: 20200716
  15. KEYTRUDA [Suspect]
     Active Substance: PEMBROLIZUMAB
     Indication: LUNG NEOPLASM MALIGNANT
     Dosage: 200 MILLIGRAM, Q3W
     Route: 042
     Dates: start: 20200430, end: 2020
  16. PLAVIX [Concomitant]
     Active Substance: CLOPIDOGREL BISULFATE
     Dosage: 1 (UNIT NOT REPORTED), QD
     Route: 048
     Dates: start: 20200401
  17. STIOLTO RESPIMAT [Concomitant]
     Active Substance: OLODATEROL HYDROCHLORIDE\TIOTROPIUM BROMIDE MONOHYDRATE
     Dosage: 2 PUFFS, DAILY (QD); FORMULATION: ACTUATION SOLUTION FOR INHALATION
     Dates: start: 20200401

REACTIONS (49)
  - Tricuspid valve incompetence [Unknown]
  - Aortic valve incompetence [Unknown]
  - Inappropriate antidiuretic hormone secretion [Unknown]
  - Pleural effusion [Unknown]
  - Peripheral swelling [Unknown]
  - Lung consolidation [Unknown]
  - Hypophagia [Unknown]
  - Lung neoplasm malignant [Fatal]
  - Tobacco user [Fatal]
  - Deep vein thrombosis [Unknown]
  - Pericardial effusion [Unknown]
  - Acute respiratory failure [Recovered/Resolved]
  - Hyponatraemia [Unknown]
  - Coronary artery disease [Unknown]
  - Dehydration [Unknown]
  - Flank pain [Unknown]
  - Illness [Unknown]
  - Granulocytes abnormal [Unknown]
  - Pneumonia [Unknown]
  - Ventricular hypokinesia [Unknown]
  - Lymphocyte count abnormal [Unknown]
  - Hypoxia [Recovered/Resolved]
  - Abnormal loss of weight [Recovering/Resolving]
  - Pulmonary cavitation [Unknown]
  - Cachexia [Unknown]
  - Atelectasis [Unknown]
  - Dizziness [Unknown]
  - Lung infiltration [Unknown]
  - Malignant neoplasm progression [Unknown]
  - Tumour necrosis [Unknown]
  - Anaemia [Unknown]
  - Hypertension [Unknown]
  - Hypomagnesaemia [Unknown]
  - Asthenia [Unknown]
  - Embolism venous [Unknown]
  - Left ventricular dysfunction [Unknown]
  - Malnutrition [Unknown]
  - Chronic obstructive pulmonary disease [Unknown]
  - Back pain [Unknown]
  - Body mass index decreased [Unknown]
  - Hypermetabolism [Unknown]
  - Musculoskeletal chest pain [Unknown]
  - Decubitus ulcer [Unknown]
  - Mitral valve incompetence [Unknown]
  - Cardiomyopathy [Unknown]
  - Cerebrovascular accident [Unknown]
  - Hyperkalaemia [Recovered/Resolved]
  - Sepsis [Recovered/Resolved]
  - Fatigue [Unknown]

NARRATIVE: CASE EVENT DATE: 2020
